FAERS Safety Report 9675811 (Version 3)
Quarter: 2013Q4

REPORT INFORMATION
  Report Type: Spontaneous
  Country: US (occurrence: US)
  Receive Date: 20131107
  Receipt Date: 20131129
  Transmission Date: 20140711
  Serious: Yes (Hospitalization)
  Sender: FDA-Public Use
  Company Number: US-BRISTOL-MYERS SQUIBB COMPANY-19603323

PATIENT
  Age: 57 Year
  Sex: Female
  Weight: 141.7 kg

DRUGS (27)
  1. BYETTA [Suspect]
  2. AMARYL [Concomitant]
     Route: 048
  3. ROCEPHIN [Concomitant]
     Route: 042
  4. PROTONIX [Concomitant]
     Route: 048
  5. BETAPACE [Concomitant]
     Route: 048
  6. ZOFRAN [Concomitant]
     Dosage: 1DF:4-8MG
     Route: 042
  7. DILAUDID [Concomitant]
     Dosage: 1DF:1-2MG
     Route: 042
  8. NITROSTAT [Concomitant]
     Route: 060
  9. CREON [Concomitant]
     Dosage: 1DF:1TAB
  10. PRILOSEC [Concomitant]
     Dosage: CAP
     Route: 048
  11. URSODEOXYCHOLIC ACID [Concomitant]
     Route: 048
  12. IMODIUM [Concomitant]
  13. PANCREASE MT 10 [Concomitant]
     Dosage: 1DF:TAKE 1 CAPSULE BY ORAL ROUTE 3 TIMES EVERY DAY WITH MEALS AND I?CAPSULE WITH EACH SNACK
     Route: 048
  14. VESICARE [Concomitant]
     Dosage: TAB
     Route: 048
  15. VITAMIN D [Concomitant]
     Dosage: TAB
     Route: 048
  16. MULTIPLE VITAMINS [Concomitant]
     Dosage: 1DF:1TAB
     Route: 048
  17. GLIMEPIRIDE [Concomitant]
     Route: 048
  18. LANTUS [Concomitant]
     Route: 058
  19. SOTALOL [Concomitant]
     Dosage: TAB
  20. ASPIRIN [Concomitant]
     Dosage: TAB
     Route: 048
  21. METFORMIN [Concomitant]
     Route: 048
  22. GLYBURIDE [Concomitant]
     Route: 048
  23. MIDODRINE HCL [Concomitant]
  24. POTASSIUM CHLORIDE [Concomitant]
  25. FLORINEF [Concomitant]
  26. CITALOPRAM [Concomitant]
  27. LORAZEPAM [Concomitant]

REACTIONS (1)
  - Adenocarcinoma pancreas [Unknown]
